FAERS Safety Report 18252716 (Version 1)
Quarter: 2020Q3

REPORT INFORMATION
  Report Type: Spontaneous
  Country: US (occurrence: US)
  Receive Date: 20200910
  Receipt Date: 20200910
  Transmission Date: 20201103
  Serious: Yes (Other)
  Sender: FDA-Public Use
  Company Number: US-GLAXOSMITHKLINE-US2020179090

PATIENT
  Age: 54 Year

DRUGS (2)
  1. RANITIDINE. [Suspect]
     Active Substance: RANITIDINE
     Dosage: UNK
  2. ZANTAC [Suspect]
     Active Substance: RANITIDINE HYDROCHLORIDE
     Dosage: UNK

REACTIONS (6)
  - Gastrointestinal carcinoma [Unknown]
  - Pancreatic carcinoma [Unknown]
  - Hypothalamo-pituitary disorder [Unknown]
  - Hepatic cancer [Unknown]
  - Breast cancer [Unknown]
  - Lymphoma [Unknown]
